FAERS Safety Report 5695096-3 (Version None)
Quarter: 2008Q2

REPORT INFORMATION
  Report Type: 
  Country: None (occurrence: None)
  Receive Date: 20080404
  Receipt Date: 20080325
  Transmission Date: 20081010
  Serious: Yes (Death)
  Sender: FDA-Public Use
  Company Number: JP-PFIZER INC-2008018761

PATIENT
  Sex: Male
  Weight: 55 kg

DRUGS (7)
  1. IRINOTECAN HCL [Suspect]
     Indication: LARGE INTESTINE CARCINOMA
     Route: 042
     Dates: start: 20080205, end: 20080219
  2. TEGAFUR/GIMERACIL/OTERACIL POTASSIUM [Suspect]
     Indication: LARGE INTESTINE CARCINOMA
     Route: 048
     Dates: start: 20080205, end: 20080218
  3. CODEINE SUL TAB [Concomitant]
     Indication: ABDOMINAL PAIN
     Dosage: DAILY DOSE:80MG-FREQ:20 MG, 4 IN 1 D
     Route: 048
     Dates: start: 20080219, end: 20080224
  4. VOLTAREN [Concomitant]
     Dosage: DAILY DOSE:75MG-FREQ:37.5 MG, 2 IN 1 D
     Route: 048
     Dates: start: 20080219, end: 20080224
  5. CYTOTEC [Concomitant]
     Indication: PROPHYLAXIS
     Dosage: DAILY DOSE:400MCG-FREQ:200 UG, 2 IN 1 D
     Route: 048
     Dates: start: 20080219, end: 20080224
  6. MAGNESIUM OXIDE HEAVY [Concomitant]
     Indication: CONSTIPATION
     Dosage: DAILY DOSE:2GRAM-FREQ:3 IN 1 D
     Route: 048
     Dates: start: 20080219, end: 20080224
  7. LECICARBON SUPPOSITORY [Concomitant]
     Indication: CONSTIPATION
     Dosage: FREQ:PRN (1 DF)
     Dates: start: 20080219

REACTIONS (9)
  - ABDOMINAL PAIN [None]
  - ACUTE MYOCARDIAL INFARCTION [None]
  - ANAEMIA [None]
  - ARTERIOSCLEROSIS CORONARY ARTERY [None]
  - BLOOD PRESSURE DECREASED [None]
  - CARDIO-RESPIRATORY ARREST [None]
  - CORONARY ARTERY STENOSIS [None]
  - DIARRHOEA [None]
  - SHOCK HAEMORRHAGIC [None]
